FAERS Safety Report 11102374 (Version 1)
Quarter: 2015Q2

REPORT INFORMATION
  Report Type: Spontaneous
  Country: JP (occurrence: JP)
  Receive Date: 20150511
  Receipt Date: 20150511
  Transmission Date: 20150821
  Serious: Yes (Death)
  Sender: FDA-Public Use
  Company Number: JP-JNJFOC-20150321592

PATIENT
  Age: 9 Decade
  Sex: Male

DRUGS (2)
  1. GONAX [Concomitant]
     Active Substance: DEGARELIX
     Route: 058
  2. ZYTIGA [Suspect]
     Active Substance: ABIRATERONE ACETATE
     Indication: PRODUCT USED FOR UNKNOWN INDICATION
     Route: 048

REACTIONS (2)
  - Sepsis [Fatal]
  - Blood testosterone increased [Unknown]
